FAERS Safety Report 8043134-5 (Version None)
Quarter: 2012Q1

REPORT INFORMATION
  Report Type: 
  Country: None (occurrence: None)
  Receive Date: 20120112
  Receipt Date: 20120109
  Transmission Date: 20120608
  Serious: Yes (Other)
  Sender: FDA-Public Use
  Company Number: PHHY2011BR91569

PATIENT
  Sex: Female

DRUGS (3)
  1. ATENSINE [Concomitant]
     Dosage: 1 TABLET, 2 OR 3 TIMES WEEKLY
  2. EXFORGE [Suspect]
     Indication: HYPERTENSION
     Dosage: 1 DF,(160/5 MG) DAILY
     Route: 048
  3. DIOVAN HCT [Suspect]
     Indication: HYPERTENSION
     Dosage: UNK UKN, UNK
     Dates: start: 20080101

REACTIONS (7)
  - BACK PAIN [None]
  - RASH [None]
  - BLOOD PRESSURE INADEQUATELY CONTROLLED [None]
  - PAIN IN EXTREMITY [None]
  - SWELLING [None]
  - NECK PAIN [None]
  - ARTHRALGIA [None]
